FAERS Safety Report 9809333 (Version 1)
Quarter: 2014Q1

REPORT INFORMATION
  Report Type: Spontaneous
  Country: US (occurrence: US)
  Receive Date: 20140110
  Receipt Date: 20140110
  Transmission Date: 20141002
  Serious: Yes (Hospitalization)
  Sender: FDA-Public Use
  Company Number: US-009507513-1401USA002494

PATIENT
  Age: 69 Year
  Sex: Female

DRUGS (1)
  1. CANCIDAS [Suspect]
     Indication: FUNGAL INFECTION
     Dosage: 50 MG, ONCE DAILY
     Route: 042
     Dates: start: 201312, end: 20131231

REACTIONS (1)
  - Eosinophilia [Recovering/Resolving]
